FAERS Safety Report 6354275-2 (Version None)
Quarter: 2009Q3

REPORT INFORMATION
  Report Type: 
  Country: None (occurrence: None)
  Receive Date: 20090914
  Receipt Date: 20090902
  Transmission Date: 20100115
  Serious: Yes (Hospitalization)
  Sender: FDA-Public Use
  Company Number: PHHY2009TW37159

PATIENT
  Sex: Male
  Weight: 39.9 kg

DRUGS (1)
  1. ICL670A ICL+DISTAB [Suspect]
     Indication: THALASSAEMIA BETA
     Dosage: 35 MG/DAY
     Route: 048
     Dates: start: 20060601, end: 20090829

REACTIONS (4)
  - ABDOMINAL PAIN [None]
  - HEPATIC NEOPLASM [None]
  - LIVER ABSCESS [None]
  - PYREXIA [None]
